FAERS Safety Report 23382142 (Version 2)
Quarter: 2024Q1

REPORT INFORMATION
  Report Type: Report from Study
  Country: CA (occurrence: CA)
  Receive Date: 20240109
  Receipt Date: 20240115
  Transmission Date: 20240410
  Serious: Yes (Other)
  Sender: FDA-Public Use
  Company Number: CA-TAKEDA-2024TUS000796

PATIENT
  Sex: Male

DRUGS (4)
  1. VEDOLIZUMAB [Suspect]
     Active Substance: VEDOLIZUMAB
     Indication: Colitis ulcerative
     Dosage: 300 MILLIGRAM
     Route: 042
     Dates: start: 20230925
  2. MESALAMINE [Concomitant]
     Active Substance: MESALAMINE
     Dosage: UNK
     Dates: start: 20200101
  3. Cortiment [Concomitant]
     Dosage: UNK
     Dates: start: 20230621
  4. Salofalk [Concomitant]
     Dosage: UNK
     Route: 054
     Dates: start: 20221201

REACTIONS (2)
  - Pneumonia [Unknown]
  - Sinusitis [Recovering/Resolving]
